FAERS Safety Report 8894926 (Version 6)
Quarter: 2014Q2

REPORT INFORMATION
  Report Type: Spontaneous
  Country: US (occurrence: US)
  Receive Date: 20121108
  Receipt Date: 20140502
  Transmission Date: 20141212
  Serious: Yes (Other)
  Sender: FDA-Public Use
  Company Number: US-ASTRAZENECA-2012SE80842

PATIENT
  Age: 77 Year
  Sex: Female

DRUGS (3)
  1. NEXIUM [Suspect]
     Indication: GASTROOESOPHAGEAL REFLUX DISEASE
     Route: 048
     Dates: start: 2010
  2. CRESTOR [Suspect]
     Route: 048
  3. FLU SHOT [Concomitant]

REACTIONS (12)
  - Oesophageal carcinoma [Unknown]
  - Barrett^s oesophagus [Not Recovered/Not Resolved]
  - Eye disorder [Unknown]
  - Tooth disorder [Unknown]
  - Gastrooesophageal reflux disease [Unknown]
  - Hypoacusis [Not Recovered/Not Resolved]
  - Overweight [Not Recovered/Not Resolved]
  - Bronchitis [Unknown]
  - Body height decreased [Unknown]
  - Weight decreased [Unknown]
  - Drug dose omission [Unknown]
  - Off label use [Not Recovered/Not Resolved]
